FAERS Safety Report 5124869-0 (Version None)
Quarter: 2006Q4

REPORT INFORMATION
  Report Type: 
  Country: None (occurrence: None)
  Receive Date: 20061006
  Receipt Date: 20060926
  Transmission Date: 20070319
  Serious: Yes (Other)
  Sender: FDA-Public Use
  Company Number: 2006109109

PATIENT
  Sex: Male

DRUGS (5)
  1. NEURONTIN [Suspect]
     Indication: NEURALGIA
  2. TEGRETOL [Suspect]
  3. LAMICTAL [Suspect]
  4. AMITRIPTYLINE HCL [Suspect]
  5. CLONAZEPAM [Suspect]

REACTIONS (2)
  - CYTOLYTIC HEPATITIS [None]
  - LIVER DISORDER [None]
